FAERS Safety Report 17315660 (Version 1)
Quarter: 2020Q1

REPORT INFORMATION
  Report Type: Spontaneous
  Country: US (occurrence: US)
  Receive Date: 20200124
  Receipt Date: 20200124
  Transmission Date: 20200409
  Serious: Yes (Other)
  Sender: FDA-Public Use
  Company Number: US-SANOFI-AVENTIS-2013SA045757

PATIENT
  Age: 44 Year
  Sex: Female
  Weight: 84 kg

DRUGS (16)
  1. PROZAC [Concomitant]
     Active Substance: FLUOXETINE HYDROCHLORIDE
     Indication: DEPRESSION
     Dosage: 20 MG,1X
     Dates: start: 200406
  2. LISINOPRIL. [Concomitant]
     Active Substance: LISINOPRIL
     Indication: HYPERTENSION
     Dosage: 10 MG,1X
     Dates: start: 201302
  3. VERAPAMIL [Concomitant]
     Active Substance: VERAPAMIL HYDROCHLORIDE
     Indication: HYPERTENSION
     Dosage: UNK UNK,1X
     Dates: start: 201007
  4. MELATONIN [Concomitant]
     Active Substance: MELATONIN
     Indication: SLEEP DISORDER
     Dosage: 3 MG,HS
     Dates: start: 201003
  5. AUBAGIO [Suspect]
     Active Substance: TERIFLUNOMIDE
     Dosage: 14 MG,QD
     Route: 048
     Dates: start: 201701
  6. ADDERALL [Concomitant]
     Active Substance: AMPHETAMINE ASPARTATE\AMPHETAMINE SULFATE\DEXTROAMPHETAMINE SACCHARATE\DEXTROAMPHETAMINE SULFATE
     Indication: FATIGUE
     Dosage: 10 MG,QD
     Dates: start: 201006
  7. VITAMIN D3 [Concomitant]
     Active Substance: CHOLECALCIFEROL
     Dosage: 2000 IU,1X
     Dates: start: 201006
  8. CIMICIFUGA RACEMOSA [Concomitant]
     Active Substance: BLACK COHOSH
     Indication: HOT FLUSH
     Dosage: 40 MG,HS
     Dates: start: 201006
  9. ADDERALL [Concomitant]
     Active Substance: AMPHETAMINE ASPARTATE\AMPHETAMINE SULFATE\DEXTROAMPHETAMINE SACCHARATE\DEXTROAMPHETAMINE SULFATE
     Indication: MULTIPLE SCLEROSIS
  10. ALPRAZOLAM. [Concomitant]
     Active Substance: ALPRAZOLAM
     Indication: ANXIETY
     Dosage: .5 MG,TID
     Dates: start: 200406
  11. CYMBALTA [Concomitant]
     Active Substance: DULOXETINE HYDROCHLORIDE
     Indication: FIBROMYALGIA
     Dosage: 30 MG,1X
     Dates: start: 201006
  12. AUBAGIO [Suspect]
     Active Substance: TERIFLUNOMIDE
     Indication: MULTIPLE SCLEROSIS
     Dosage: 14 MG,QD
     Route: 048
     Dates: start: 20130424
  13. AUBAGIO [Suspect]
     Active Substance: TERIFLUNOMIDE
     Dosage: 14 MG, QD
     Route: 048
     Dates: start: 20150728
  14. METAXALONE. [Concomitant]
     Active Substance: METAXALONE
     Indication: INFLAMMATION
     Dosage: 800 MG,TID
     Dates: start: 201210
  15. FISH OIL [Concomitant]
     Active Substance: FISH OIL
     Indication: INFLAMMATION
     Dosage: UNK UNK,BID
     Dates: start: 201108
  16. PROCHLORPERAZINE. [Concomitant]
     Active Substance: PROCHLORPERAZINE
     Indication: NAUSEA
     Dosage: 10 MG,UNK
     Dates: start: 201007

REACTIONS (9)
  - Staphylococcal infection [Not Recovered/Not Resolved]
  - Depression [Not Recovered/Not Resolved]
  - Pain [Unknown]
  - Wrong technique in product usage process [Unknown]
  - Alopecia [Unknown]
  - Pruritus [Recovered/Resolved]
  - Rash [Unknown]
  - Fatigue [Not Recovered/Not Resolved]
  - Nerve injury [Not Recovered/Not Resolved]

NARRATIVE: CASE EVENT DATE: 20130429
